FAERS Safety Report 9601230 (Version 1)
Quarter: 2013Q4

REPORT INFORMATION
  Report Type: Spontaneous
  Country: PT (occurrence: PT)
  Receive Date: 20131005
  Receipt Date: 20131005
  Transmission Date: 20140711
  Serious: Yes (Other)
  Sender: FDA-Public Use
  Company Number: PT-TEVA-434646ISR

PATIENT
  Age: 52 Year
  Sex: Female
  Weight: 70 kg

DRUGS (2)
  1. ATORVASTATIN 10 MG TEVA? [Suspect]
     Indication: BLOOD CHOLESTEROL
     Dosage: 1 TABLET DAILY;
     Route: 048
     Dates: start: 20130801
  2. TWYNSTA [Concomitant]
     Indication: HYPERTENSION
     Route: 048

REACTIONS (1)
  - Oral candidiasis [Recovered/Resolved]
